FAERS Safety Report 9893931 (Version 1)
Quarter: 2014Q1

REPORT INFORMATION
  Report Type: Spontaneous
  Country: AU (occurrence: AU)
  Receive Date: 20140213
  Receipt Date: 20140213
  Transmission Date: 20141002
  Serious: Yes (Other)
  Sender: FDA-Public Use
  Company Number: AU-BAXTER-2014BAX006438

PATIENT
  Sex: 0

DRUGS (1)
  1. ARTISS FIBRIN SEALAND VH S/D 4IU (FROZEN) SOLUTION FOR SEALANT SYRINGE [Suspect]
     Indication: PRODUCT USED FOR UNKNOWN INDICATION
     Route: 065

REACTIONS (1)
  - Scleritis [Unknown]
